FAERS Safety Report 4683826-9 (Version None)
Quarter: 2005Q2

REPORT INFORMATION
  Report Type: 
  Country: None (occurrence: None)
  Receive Date: 20050607
  Receipt Date: 20050525
  Transmission Date: 20051028
  Serious: Yes (Death, Hospitalization)
  Sender: FDA-Public Use
  Company Number: FR-JNJFOC-20050600441

PATIENT
  Age: 90 Year
  Sex: Male

DRUGS (6)
  1. TRAMADOL HCL [Suspect]
     Indication: DRUG USE FOR UNKNOWN INDICATION
     Route: 049
     Dates: end: 20050416
  2. LASILIX [Suspect]
     Indication: DRUG USE FOR UNKNOWN INDICATION
     Dosage: FOR A FEW YEARS
     Route: 049
  3. ROVAMYCINE [Suspect]
     Indication: DRUG USE FOR UNKNOWN INDICATION
     Route: 049
  4. AUGMENTIN [Suspect]
     Route: 049
  5. AUGMENTIN [Suspect]
     Indication: DRUG USE FOR UNKNOWN INDICATION
     Dosage: 3G + 375MG DAILY
     Route: 049
  6. PANTOPRAZOLE SODIUM [Suspect]
     Indication: DRUG USE FOR UNKNOWN INDICATION
     Route: 049

REACTIONS (4)
  - GASTRIC ULCER PERFORATION [None]
  - PURPURA NON-THROMBOCYTOPENIC [None]
  - RESPIRATORY DISORDER [None]
  - RESPIRATORY FAILURE [None]
